FAERS Safety Report 16442197 (Version 1)
Quarter: 2019Q2

REPORT INFORMATION
  Report Type: Spontaneous
  Country: US (occurrence: US)
  Receive Date: 20190617
  Receipt Date: 20190617
  Transmission Date: 20190711
  Serious: No
  Sender: FDA-Public Use
  Company Number: US-US WORLDMEDS, LLC-USW201902-000255

PATIENT
  Sex: Female
  Weight: 66.22 kg

DRUGS (19)
  1. ALPRAZOLAM. [Concomitant]
     Active Substance: ALPRAZOLAM
  2. SIMBRINZA [Concomitant]
     Active Substance: BRIMONIDINE TARTRATE\BRINZOLAMIDE
  3. FUROSEMIDE. [Concomitant]
     Active Substance: FUROSEMIDE
  4. APOKYN [Suspect]
     Active Substance: APOMORPHINE HYDROCHLORIDE
  5. SINEMET [Concomitant]
     Active Substance: CARBIDOPA\LEVODOPA
  6. APOKYN [Suspect]
     Active Substance: APOMORPHINE HYDROCHLORIDE
     Indication: PRODUCT USED FOR UNKNOWN INDICATION
  7. AMANTADINE. [Concomitant]
     Active Substance: AMANTADINE HYDROCHLORIDE
  8. NEUPRO [Concomitant]
     Active Substance: ROTIGOTINE
  9. AZILECT [Concomitant]
     Active Substance: RASAGILINE MESYLATE
  10. TAMSULOSIN [Concomitant]
     Active Substance: TAMSULOSIN
  11. PHENOBARBITAL. [Concomitant]
     Active Substance: PHENOBARBITAL
  12. TOVIAZ [Concomitant]
     Active Substance: FESOTERODINE FUMARATE
  13. CARVEDILOL. [Concomitant]
     Active Substance: CARVEDILOL
  14. PROAIR HFA [Concomitant]
     Active Substance: ALBUTEROL SULFATE
  15. LEVOTHYROXINE. [Concomitant]
     Active Substance: LEVOTHYROXINE
  16. OMEPRAZOLE. [Concomitant]
     Active Substance: OMEPRAZOLE
  17. CLOBETASOL PROPIONATE. [Concomitant]
     Active Substance: CLOBETASOL PROPIONATE
  18. DOXEPIN [Concomitant]
     Active Substance: DOXEPIN
  19. TRAVATAN [Concomitant]
     Active Substance: TRAVOPROST

REACTIONS (3)
  - Incorrect dose administered by device [Not Recovered/Not Resolved]
  - Device use issue [Not Recovered/Not Resolved]
  - Incorrect dose administered [Not Recovered/Not Resolved]
